FAERS Safety Report 9831210 (Version 1)
Quarter: 2014Q1

REPORT INFORMATION
  Report Type: Report from Study
  Country: US (occurrence: US)
  Receive Date: 20140121
  Receipt Date: 20140121
  Transmission Date: 20141002
  Serious: Yes (Death)
  Sender: FDA-Public Use
  Company Number: US-ROCHE-1334104

PATIENT
  Age: 51 Year
  Sex: Male
  Weight: 82.63 kg

DRUGS (15)
  1. AVASTIN [Suspect]
     Indication: ADENOCARCINOMA
     Route: 042
     Dates: start: 20120206
  2. AVASTIN [Suspect]
     Route: 042
     Dates: start: 20120213
  3. AVASTIN [Suspect]
     Route: 042
     Dates: start: 20120306
  4. AVASTIN [Suspect]
     Route: 042
     Dates: start: 20120320
  5. CAMPTOSAR [Concomitant]
     Indication: ADENOCARCINOMA
     Route: 042
     Dates: start: 20120206
  6. CAMPTOSAR [Concomitant]
     Route: 042
     Dates: start: 20120227, end: 20120306
  7. FOLINIC ACID [Concomitant]
     Indication: ADENOCARCINOMA
     Route: 042
     Dates: end: 20120206
  8. LEUCOVORIN [Concomitant]
     Route: 042
     Dates: start: 20120206
  9. ATROPINE [Concomitant]
     Route: 042
     Dates: start: 20120206
  10. FAMOTIDINE [Concomitant]
     Route: 042
  11. ANZEMET [Concomitant]
     Route: 042
     Dates: start: 20120327
  12. RANITIDINE [Concomitant]
     Route: 041
     Dates: start: 20120206
  13. ALOXI [Concomitant]
     Route: 042
     Dates: start: 20120206
  14. BENADRYL (UNITED STATES) [Concomitant]
     Route: 042
     Dates: start: 20120206
  15. DECADRON [Concomitant]
     Route: 042
     Dates: start: 20120206

REACTIONS (7)
  - Death [Fatal]
  - Dizziness [Unknown]
  - Asthenia [Unknown]
  - Pain [Unknown]
  - Decreased appetite [Unknown]
  - Gait disturbance [Unknown]
  - Fatigue [Unknown]
